FAERS Safety Report 23949939 (Version 11)
Quarter: 2025Q2

REPORT INFORMATION
  Report Type: Spontaneous
  Country: GB (occurrence: GB)
  Receive Date: 20240607
  Receipt Date: 20250623
  Transmission Date: 20250717
  Serious: Yes (Other)
  Sender: ORGANON
  Company Number: GB-SANDOZ-SDZ2023GB048792

PATIENT
  Sex: Male

DRUGS (134)
  1. BETAMETHASONE DIPROPIONATE [Suspect]
     Active Substance: BETAMETHASONE DIPROPIONATE
     Indication: Product used for unknown indication
  2. BETAMETHASONE DIPROPIONATE [Suspect]
     Active Substance: BETAMETHASONE DIPROPIONATE
  3. CYCLOSPORINE [Suspect]
     Active Substance: CYCLOSPORINE
     Indication: Psoriasis
     Route: 050
  4. CYCLOSPORINE [Suspect]
     Active Substance: CYCLOSPORINE
     Dosage: 300 MILLIGRAM
  5. CYCLOSPORINE [Suspect]
     Active Substance: CYCLOSPORINE
  6. CYCLOSPORINE [Suspect]
     Active Substance: CYCLOSPORINE
  7. CYCLOSPORINE [Suspect]
     Active Substance: CYCLOSPORINE
     Route: 058
  8. CYCLOSPORINE [Suspect]
     Active Substance: CYCLOSPORINE
     Dosage: 300 MILLIGRAM, MONTHLY
     Route: 058
  9. CYCLOSPORINE [Suspect]
     Active Substance: CYCLOSPORINE
     Route: 058
  10. CYCLOSPORINE [Suspect]
     Active Substance: CYCLOSPORINE
  11. COSENTYX [Suspect]
     Active Substance: SECUKINUMAB
     Indication: Product used for unknown indication
     Dosage: 300 MILLIGRAM, MONTHLY QMO (300 MG MONTHLY)
     Route: 058
  12. COSENTYX [Suspect]
     Active Substance: SECUKINUMAB
     Dosage: 300 MILLIGRAM, MONTHLY QMO (300 MG MONTHLY)
     Route: 058
  13. BETAMETHASONE DIPROPIONATE\CALCIPOTRIENE MONOHYDRATE [Suspect]
     Active Substance: BETAMETHASONE DIPROPIONATE\CALCIPOTRIENE MONOHYDRATE
     Indication: Product used for unknown indication
     Route: 050
  14. BETAMETHASONE DIPROPIONATE\CALCIPOTRIENE MONOHYDRATE [Suspect]
     Active Substance: BETAMETHASONE DIPROPIONATE\CALCIPOTRIENE MONOHYDRATE
     Indication: Product used for unknown indication
  15. BETAMETHASONE DIPROPIONATE\CALCIPOTRIENE MONOHYDRATE [Suspect]
     Active Substance: BETAMETHASONE DIPROPIONATE\CALCIPOTRIENE MONOHYDRATE
     Route: 048
  16. BETAMETHASONE DIPROPIONATE\CALCIPOTRIENE MONOHYDRATE [Suspect]
     Active Substance: BETAMETHASONE DIPROPIONATE\CALCIPOTRIENE MONOHYDRATE
     Route: 003
  17. BETAMETHASONE DIPROPIONATE\CALCIPOTRIENE MONOHYDRATE [Suspect]
     Active Substance: BETAMETHASONE DIPROPIONATE\CALCIPOTRIENE MONOHYDRATE
     Route: 003
  18. BETAMETHASONE DIPROPIONATE\CALCIPOTRIENE MONOHYDRATE [Suspect]
     Active Substance: BETAMETHASONE DIPROPIONATE\CALCIPOTRIENE MONOHYDRATE
     Route: 003
  19. BETAMETHASONE DIPROPIONATE\CALCIPOTRIENE MONOHYDRATE [Suspect]
     Active Substance: BETAMETHASONE DIPROPIONATE\CALCIPOTRIENE MONOHYDRATE
     Dosage: UNK, AS NEEDED (RARELY, QV)
  20. BETAMETHASONE DIPROPIONATE\CALCIPOTRIENE MONOHYDRATE [Suspect]
     Active Substance: BETAMETHASONE DIPROPIONATE\CALCIPOTRIENE MONOHYDRATE
     Route: 048
  21. COCODAMOL [Suspect]
     Active Substance: ACETAMINOPHEN\CODEINE PHOSPHATE
     Indication: Product used for unknown indication
     Dosage: 30/500MG 2 TABLETS TDS
     Route: 065
  22. COCODAMOL [Suspect]
     Active Substance: ACETAMINOPHEN\CODEINE PHOSPHATE
     Indication: Product used for unknown indication
     Dosage: TIME INTERVAL: 0.33333333 DAYS: 2 DOSAGE FORM, TID (30/500MG 2 TABLETS TDS)6 DOSAGE FORM, Q
     Route: 065
  23. COCODAMOL [Suspect]
     Active Substance: ACETAMINOPHEN\CODEINE PHOSPHATE
     Dosage: 2 DOSAGE FORM, QD (ONCE DAILY), DOSE FORM: TABLET
  24. COCODAMOL [Suspect]
     Active Substance: ACETAMINOPHEN\CODEINE PHOSPHATE
     Dosage: 2 DOSAGE FORM, QD (2 DOSAGE FORM, TID (30/500MG 2 TABLETS TDS) ;TIME INTERVAL:), DOSE FORM: TABLET
     Route: 048
  25. COCODAMOL [Suspect]
     Active Substance: ACETAMINOPHEN\CODEINE PHOSPHATE
     Dosage: 6 DOSAGE FORM, QD (1 TIME EVERY DAY), DOSE FORM:TABLET
     Route: 048
  26. STELARA [Suspect]
     Active Substance: USTEKINUMAB
     Indication: Psoriasis
     Route: 065
  27. STELARA [Suspect]
     Active Substance: USTEKINUMAB
  28. STELARA [Suspect]
     Active Substance: USTEKINUMAB
     Route: 058
  29. STELARA [Suspect]
     Active Substance: USTEKINUMAB
     Route: 058
  30. STELARA [Suspect]
     Active Substance: USTEKINUMAB
  31. STELARA [Suspect]
     Active Substance: USTEKINUMAB
  32. STELARA [Suspect]
     Active Substance: USTEKINUMAB
     Route: 065
  33. STELARA [Suspect]
     Active Substance: USTEKINUMAB
  34. STELARA [Suspect]
     Active Substance: USTEKINUMAB
  35. STELARA [Suspect]
     Active Substance: USTEKINUMAB
     Route: 058
  36. STELARA [Suspect]
     Active Substance: USTEKINUMAB
  37. STELARA [Suspect]
     Active Substance: USTEKINUMAB
  38. STELARA [Suspect]
     Active Substance: USTEKINUMAB
     Route: 058
  39. STELARA [Suspect]
     Active Substance: USTEKINUMAB
     Route: 058
  40. HUMIRA [Suspect]
     Active Substance: ADALIMUMAB
     Indication: Psoriasis
     Route: 050
  41. HUMIRA [Suspect]
     Active Substance: ADALIMUMAB
  42. HUMIRA [Suspect]
     Active Substance: ADALIMUMAB
     Route: 003
  43. HUMIRA [Suspect]
     Active Substance: ADALIMUMAB
     Route: 058
  44. HUMIRA [Suspect]
     Active Substance: ADALIMUMAB
     Route: 058
  45. HUMIRA [Suspect]
     Active Substance: ADALIMUMAB
  46. HUMIRA [Suspect]
     Active Substance: ADALIMUMAB
     Route: 058
  47. HUMIRA [Suspect]
     Active Substance: ADALIMUMAB
     Route: 058
  48. HUMIRA [Suspect]
     Active Substance: ADALIMUMAB
     Route: 058
  49. METHOTREXATE SODIUM [Suspect]
     Active Substance: METHOTREXATE SODIUM
     Indication: Psoriasis
     Route: 065
  50. METHOTREXATE SODIUM [Suspect]
     Active Substance: METHOTREXATE SODIUM
     Route: 065
  51. ACITRETIN [Suspect]
     Active Substance: ACITRETIN
     Indication: Psoriasis
     Route: 065
  52. ACITRETIN [Suspect]
     Active Substance: ACITRETIN
  53. ACITRETIN [Suspect]
     Active Substance: ACITRETIN
     Route: 065
  54. ACITRETIN [Suspect]
     Active Substance: ACITRETIN
     Route: 058
  55. ACITRETIN [Suspect]
     Active Substance: ACITRETIN
     Route: 058
  56. ACITRETIN [Suspect]
     Active Substance: ACITRETIN
     Route: 058
  57. ACITRETIN [Suspect]
     Active Substance: ACITRETIN
     Route: 058
  58. ACITRETIN [Suspect]
     Active Substance: ACITRETIN
     Route: 058
  59. ACITRETIN [Suspect]
     Active Substance: ACITRETIN
     Dosage: 2 DOSAGE FORM, TID (TIME INTERVAL: 0.33333333 DAYS)
  60. HYDROXYUREA [Suspect]
     Active Substance: HYDROXYUREA
     Indication: Psoriasis
     Route: 050
  61. HYDROXYUREA [Suspect]
     Active Substance: HYDROXYUREA
  62. HYDROXYUREA [Suspect]
     Active Substance: HYDROXYUREA
  63. HYDROXYUREA [Suspect]
     Active Substance: HYDROXYUREA
  64. COSENTYX [Suspect]
     Active Substance: SECUKINUMAB
     Dosage: 300 MG, MONTHLY
     Route: 058
  65. BETAMETHASONE DIPROPIONATE\CALCIPOTRIENE MONOHYDRATE [Suspect]
     Active Substance: BETAMETHASONE DIPROPIONATE\CALCIPOTRIENE MONOHYDRATE
     Dosage: UNK, AS NEEDED (RARELY, QV)
     Route: 065
  66. CYCLOSPORINE [Suspect]
     Active Substance: CYCLOSPORINE
     Indication: Psoriasis
     Dosage: 300 MILLIGRAM, MONTHLY
     Route: 065
  67. CYCLOSPORINE [Suspect]
     Active Substance: CYCLOSPORINE
     Dosage: 300 MILLIGRAM, MONTHLY
     Route: 065
  68. CYCLOSPORINE [Suspect]
     Active Substance: CYCLOSPORINE
     Route: 065
  69. CYCLOSPORINE [Suspect]
     Active Substance: CYCLOSPORINE
     Dosage: 300 MILLIGRAM, MONTHLY
     Route: 058
  70. CYCLOSPORINE [Suspect]
     Active Substance: CYCLOSPORINE
     Route: 058
  71. CYCLOSPORINE [Suspect]
     Active Substance: CYCLOSPORINE
     Route: 058
  72. CYCLOSPORINE [Suspect]
     Active Substance: CYCLOSPORINE
     Dosage: 300 MILLIGRAM, MONTHLY
  73. CYCLOSPORINE [Suspect]
     Active Substance: CYCLOSPORINE
  74. CYCLOSPORINE [Suspect]
     Active Substance: CYCLOSPORINE
  75. CYCLOSPORINE [Suspect]
     Active Substance: CYCLOSPORINE
     Dosage: 300 MILLIGRAM, MONTH (QM)
     Route: 048
  76. COCODAMOL [Suspect]
     Active Substance: ACETAMINOPHEN\CODEINE PHOSPHATE
     Dosage: 2 DOSAGE FORM, TID (30/500MG 2 TABLETS TDS); TIME INTERVAL:
     Route: 050
  77. COCODAMOL [Suspect]
     Active Substance: ACETAMINOPHEN\CODEINE PHOSPHATE
     Dosage: 6 DF, 1X/DAY
     Route: 050
  78. STELARA [Suspect]
     Active Substance: USTEKINUMAB
     Indication: Psoriasis
     Route: 050
  79. HUMIRA [Suspect]
     Active Substance: ADALIMUMAB
     Indication: Psoriasis
     Route: 065
  80. HUMIRA [Suspect]
     Active Substance: ADALIMUMAB
     Route: 058
  81. HUMIRA [Suspect]
     Active Substance: ADALIMUMAB
     Route: 058
  82. HUMIRA [Suspect]
     Active Substance: ADALIMUMAB
     Route: 058
  83. HUMIRA [Suspect]
     Active Substance: ADALIMUMAB
     Route: 058
  84. METHOTREXATE SODIUM [Suspect]
     Active Substance: METHOTREXATE SODIUM
     Indication: Psoriasis
     Route: 050
  85. ACITRETIN [Suspect]
     Active Substance: ACITRETIN
     Indication: Psoriasis
     Route: 050
  86. ACITRETIN [Suspect]
     Active Substance: ACITRETIN
     Route: 048
  87. HYDROXYUREA [Suspect]
     Active Substance: HYDROXYUREA
     Indication: Psoriasis
     Route: 065
  88. METHOTREXATE [Suspect]
     Active Substance: METHOTREXATE
     Indication: Psoriasis
  89. METHOTREXATE [Suspect]
     Active Substance: METHOTREXATE
  90. METHOTREXATE [Suspect]
     Active Substance: METHOTREXATE
     Route: 065
  91. METHOTREXATE [Suspect]
     Active Substance: METHOTREXATE
     Route: 058
  92. METHOTREXATE [Suspect]
     Active Substance: METHOTREXATE
     Route: 058
  93. METHOTREXATE [Suspect]
     Active Substance: METHOTREXATE
     Route: 065
  94. SECUKINUMAB [Suspect]
     Active Substance: SECUKINUMAB
     Indication: Product used for unknown indication
     Dosage: 300 MILLIGRAM (300 MG MONTHLY)(300 MG, QMO) OROMUCOSAL SUSPENSION
     Route: 058
  95. SECUKINUMAB [Suspect]
     Active Substance: SECUKINUMAB
  96. COCODAMOL [Suspect]
     Active Substance: ACETAMINOPHEN\CODEINE PHOSPHATE
     Indication: Product used for unknown indication
     Dosage: 6 DOSAGE FORM, QD (1 TIME EVERY DAY)
     Route: 048
  97. COCODAMOL [Suspect]
     Active Substance: ACETAMINOPHEN\CODEINE PHOSPHATE
     Dosage: 2 DOSAGE FORM, TID (30/500MG 2 TABLETS TDS) ;TIME INTERVAL:0.33333333 DAYS
     Route: 048
  98. COCODAMOL [Suspect]
     Active Substance: ACETAMINOPHEN\CODEINE PHOSPHATE
     Dosage: 2 DOSAGE FORM, TID (30/500MG 2 TABLETS TDS) ;TIME INTERVAL:
     Route: 048
  99. COCODAMOL [Suspect]
     Active Substance: ACETAMINOPHEN\CODEINE PHOSPHATE
     Dosage: 6 DOSAGE FORM, QD (2 DOSAGE FORM, TID (30/500MG 2 TABLETS TDS) ;TIME INTERVAL:0.33333333 DAYS)
     Route: 048
  100. COCODAMOL [Suspect]
     Active Substance: ACETAMINOPHEN\CODEINE PHOSPHATE
     Dosage: 6 DOSAGE FORM, QD (1 TIME EVERY DAY)
     Route: 048
  101. COCODAMOL [Suspect]
     Active Substance: ACETAMINOPHEN\CODEINE PHOSPHATE
     Dosage: 2 DOSAGE FORM, QD (ONCE DAILY)
     Route: 048
  102. COCODAMOL [Suspect]
     Active Substance: ACETAMINOPHEN\CODEINE PHOSPHATE
     Dosage: 2 DOSAGE FORM, QD (2 DOSAGE FORM, TID (30/500MG 2 TABLETS TDS) ;TIME INTERVAL:)
     Route: 048
  103. COCODAMOL [Suspect]
     Active Substance: ACETAMINOPHEN\CODEINE PHOSPHATE
     Dosage: 6 DOSAGE FORM, QD
     Route: 048
  104. COCODAMOL [Suspect]
     Active Substance: ACETAMINOPHEN\CODEINE PHOSPHATE
     Dosage: 6 DOSAGE FORM, QD
     Route: 048
  105. COCODAMOL [Suspect]
     Active Substance: ACETAMINOPHEN\CODEINE PHOSPHATE
     Route: 048
  106. ACETAMINOPHEN\CODEINE PHOSPHATE [Suspect]
     Active Substance: ACETAMINOPHEN\CODEINE PHOSPHATE
     Indication: Product used for unknown indication
     Route: 065
  107. ACETAMINOPHEN\CODEINE PHOSPHATE [Suspect]
     Active Substance: ACETAMINOPHEN\CODEINE PHOSPHATE
     Dosage: 2 DOSAGE FORM, TID (30/500MG 2 TABLETS TDS)6 DOSAGE FORM, QD
     Route: 048
  108. ACETAMINOPHEN\CODEINE PHOSPHATE [Suspect]
     Active Substance: ACETAMINOPHEN\CODEINE PHOSPHATE
     Dosage: 6 DOSAGE FORM, ONCE DAILY (QD)
     Route: 048
  109. DAIVOBET [Suspect]
     Active Substance: BETAMETHASONE DIPROPIONATE\CALCIPOTRIENE
     Indication: Product used for unknown indication
     Route: 048
  110. DAIVOBET [Suspect]
     Active Substance: BETAMETHASONE DIPROPIONATE\CALCIPOTRIENE
  111. DAIVOBET [Suspect]
     Active Substance: BETAMETHASONE DIPROPIONATE\CALCIPOTRIENE
     Route: 003
  112. DAIVOBET [Suspect]
     Active Substance: BETAMETHASONE DIPROPIONATE\CALCIPOTRIENE
     Route: 003
  113. CALCIPOTRIENE [Suspect]
     Active Substance: CALCIPOTRIENE
     Indication: Product used for unknown indication
     Route: 048
  114. CALCIPOTRIENE [Suspect]
     Active Substance: CALCIPOTRIENE
     Route: 003
  115. CALCIPOTRIENE [Suspect]
     Active Substance: CALCIPOTRIENE
     Route: 003
  116. CALCIPOTRIENE [Suspect]
     Active Substance: CALCIPOTRIENE
     Route: 003
  117. COSENTYX [Suspect]
     Active Substance: SECUKINUMAB
     Indication: Product used for unknown indication
     Dosage: 300 MILLIGRAM, MONTHLY QMO (300 MG MONTHLY)
     Route: 058
  118. COSENTYX [Suspect]
     Active Substance: SECUKINUMAB
     Dosage: 300 MG, QMO
  119. CYCLOSPORINE [Suspect]
     Active Substance: CYCLOSPORINE
     Indication: Psoriasis
     Dosage: 300 MILLIGRAM, MONTHLY, DOSE FORM:CAPSULE, SOFT
  120. CYCLOSPORINE [Suspect]
     Active Substance: CYCLOSPORINE
  121. CYCLOSPORINE [Suspect]
     Active Substance: CYCLOSPORINE
  122. CYCLOSPORINE [Suspect]
     Active Substance: CYCLOSPORINE
     Route: 058
  123. CYCLOSPORINE [Suspect]
     Active Substance: CYCLOSPORINE
     Route: 058
  124. CYCLOSPORINE [Suspect]
     Active Substance: CYCLOSPORINE
     Dosage: 300 MG, QMO, DOSE FORM: CAPSULE, SOFT
     Route: 058
  125. SECUKINUMAB [Suspect]
     Active Substance: SECUKINUMAB
     Indication: Product used for unknown indication
     Dosage: 300 MG, QMO (OROMUCOSAL SUSPENSION)
     Route: 058
  126. SECUKINUMAB [Suspect]
     Active Substance: SECUKINUMAB
     Dosage: 300 MG, QMO
  127. CODEINE [Suspect]
     Active Substance: CODEINE
     Indication: Product used for unknown indication
     Dosage: 2 DOSAGE FORM, QD (30/500MG 2 TABLETS TDS)
  128. CODEINE [Suspect]
     Active Substance: CODEINE
     Dosage: 6 DOSAGE FORM, QD, DOSAGE FORM TABLET
  129. CODEINE [Suspect]
     Active Substance: CODEINE
     Dosage: 2 DOSAGE FORM, QD
  130. ACITRETIN [Suspect]
     Active Substance: ACITRETIN
     Indication: Psoriasis
  131. ACITRETIN [Suspect]
     Active Substance: ACITRETIN
     Route: 058
  132. ACITRETIN [Suspect]
     Active Substance: ACITRETIN
     Route: 058
  133. ACETAMINOPHEN\CODEINE PHOSPHATE [Suspect]
     Active Substance: ACETAMINOPHEN\CODEINE PHOSPHATE
     Indication: Product used for unknown indication
     Dosage: TIME INTERVAL: 0.33333333 DAYS: 30/500MG 2 TABLETS TDS, CODEINE PHOSPHATE;PARACETAMOL
  134. SECUKINUMAB [Suspect]
     Active Substance: SECUKINUMAB
     Indication: Product used for unknown indication
     Dosage: 300 MILLIGRAM (300 MG MONTHLY)
     Route: 065

REACTIONS (19)
  - Skin hyperpigmentation [Unknown]
  - Chest pain [Unknown]
  - Pruritus [Unknown]
  - Therapeutic product effect incomplete [Unknown]
  - Hypertension [Unknown]
  - Wheezing [Unknown]
  - Rash [Unknown]
  - Burning sensation [Unknown]
  - Hypertension [Unknown]
  - Wheezing [Unknown]
  - Therapeutic product effect incomplete [Unknown]
  - Therapeutic product effect incomplete [Unknown]
  - Rash pruritic [Unknown]
  - Burning sensation [Unknown]
  - Skin hyperpigmentation [Unknown]
  - Rash [Unknown]
  - Pruritus [Unknown]
  - Chest pain [Unknown]
  - Drug ineffective [Unknown]
